FAERS Safety Report 9299921 (Version 2)
Quarter: 2013Q2

REPORT INFORMATION
  Report Type: Spontaneous
  Country: US (occurrence: None)
  Receive Date: 20121227
  Receipt Date: 20130507
  Transmission Date: 20140414
  Serious: No
  Sender: FDA-Public Use
  Company Number: PHEH2012US023327

PATIENT
  Age: 43 Year
  Sex: Female

DRUGS (2)
  1. AFINITOR [Suspect]
     Indication: BREAST CANCER
     Route: 048
     Dates: start: 201210, end: 201211
  2. AROMASIN (EXEMESTANE) [Concomitant]

REACTIONS (8)
  - Oral pain [None]
  - Alopecia [None]
  - Speech disorder [None]
  - Eating disorder [None]
  - Stomatitis [None]
  - Insomnia [None]
  - Mouth ulceration [None]
  - Mucosal inflammation [None]
